FAERS Safety Report 10538182 (Version 2)
Quarter: 2016Q1

REPORT INFORMATION
  Report Type: Other
  Country: GB (occurrence: GB)
  Receive Date: 20141023
  Receipt Date: 20160129
  Transmission Date: 20160525
  Serious: Yes (Death, Hospitalization, Disabling, Other)
  Sender: FDA-Public Use
  Company Number: GB-MYLANLABS-2014M1007193

PATIENT

DRUGS (9)
  1. CAPECITABINE. [Suspect]
     Active Substance: CAPECITABINE
     Indication: BREAST CANCER METASTATIC
     Dosage: 1500 MG, BID
     Route: 048
     Dates: start: 2014
  2. HERCEPTIN [Concomitant]
     Active Substance: TRASTUZUMAB
     Indication: BREAST CANCER METASTATIC
     Dosage: 347 MG, Q3W
     Route: 042
     Dates: start: 201407
  3. LANSOPRAZOLE. [Concomitant]
     Active Substance: LANSOPRAZOLE
     Indication: PRODUCT USED FOR UNKNOWN INDICATION
  4. STEROID ANTIBACTERIALS [Concomitant]
     Active Substance: UNSPECIFIED INGREDIENT
     Dosage: UNK
  5. CLOZAPINE. [Concomitant]
     Active Substance: CLOZAPINE
     Indication: SCHIZOPHRENIA
     Dosage: 225 MG, UNK
  6. CLOZAPINE. [Concomitant]
     Active Substance: CLOZAPINE
     Dosage: 250 MG, UNK
  7. ANTIBIOTICS [Concomitant]
     Active Substance: UNSPECIFIED INGREDIENT
     Dosage: UNK
  8. CODEINE [Suspect]
     Active Substance: CODEINE
     Dosage: UNK
  9. LENOGRASTIM [Concomitant]
     Active Substance: LENOGRASTIM
     Indication: PRODUCT USED FOR UNKNOWN INDICATION
     Dosage: 263 MG, UNK
     Dates: start: 20140818

REACTIONS (20)
  - Acute kidney injury [Unknown]
  - Liver function test abnormal [Unknown]
  - Prescribed overdose [Unknown]
  - Pulmonary oedema [Not Recovered/Not Resolved]
  - Oral candidiasis [Unknown]
  - Dysphagia [Not Recovered/Not Resolved]
  - Asthenia [Unknown]
  - Seizure [Unknown]
  - Gait disturbance [Unknown]
  - Peripheral swelling [Not Recovered/Not Resolved]
  - Fatigue [Unknown]
  - Drug prescribing error [Unknown]
  - Metabolic acidosis [Fatal]
  - Weight decreased [Unknown]
  - Peripheral swelling [Unknown]
  - Fall [Unknown]
  - Fluid retention [Unknown]
  - Diarrhoea [Recovered/Resolved]
  - Dyspnoea [Not Recovered/Not Resolved]
  - Coma [Not Recovered/Not Resolved]

NARRATIVE: CASE EVENT DATE: 2014
